FAERS Safety Report 8970675 (Version 1)
Quarter: 2012Q4

REPORT INFORMATION
  Report Type: 
  Country: US (occurrence: US)
  Receive Date: 20121218
  Receipt Date: 20121218
  Transmission Date: 20130627
  Serious: Yes (Hospitalization, Other)
  Sender: FDA-Public Use
  Company Number: US-BRISTOL-MYERS SQUIBB COMPANY-14895270

PATIENT
  Age: 46 Year
  Sex: Male
  Weight: 67.12 kg

DRUGS (8)
  1. ABILIFY [Suspect]
     Indication: DEPRESSION
     Dosage: 1DF=2mg/5mg
     Dates: start: 200907, end: 200912
  2. BUSPAR [Concomitant]
  3. CLONIDINE [Concomitant]
  4. THORAZINE [Concomitant]
  5. ZOLOFT [Concomitant]
  6. COGENTIN [Concomitant]
     Route: 048
  7. BUSPAR [Concomitant]
     Route: 048
  8. KLONOPIN [Concomitant]

REACTIONS (5)
  - Anxiety [Not Recovered/Not Resolved]
  - Restlessness [Not Recovered/Not Resolved]
  - Crying [Not Recovered/Not Resolved]
  - Weight decreased [Not Recovered/Not Resolved]
  - Weight increased [Unknown]
